FAERS Safety Report 5486782-9 (Version None)
Quarter: 2007Q4

REPORT INFORMATION
  Report Type: 
  Country: None (occurrence: None)
  Receive Date: 20071016
  Receipt Date: 20071010
  Transmission Date: 20080405
  Serious: Yes (Hospitalization)
  Sender: FDA-Public Use
  Company Number: B0491055A

PATIENT
  Age: 50 Year
  Sex: Male

DRUGS (4)
  1. TIMENTIN [Suspect]
     Indication: SEPSIS
     Route: 042
     Dates: start: 20070919, end: 20070924
  2. MAXALT [Concomitant]
     Route: 042
  3. CA SANDOZ [Concomitant]
     Route: 042
  4. ZANTAC [Concomitant]

REACTIONS (2)
  - PHARMACEUTICAL PRODUCT COMPLAINT [None]
  - PYREXIA [None]
